FAERS Safety Report 4947728-2 (Version None)
Quarter: 2006Q1

REPORT INFORMATION
  Report Type: 
  Country: None (occurrence: None)
  Receive Date: 20060320
  Receipt Date: 20060308
  Transmission Date: 20060701
  Serious: Yes (Hospitalization)
  Sender: FDA-Public Use
  Company Number: US-KINGPHARMUSA00001-K200600336

PATIENT
  Age: 23 Year
  Sex: Male
  Weight: 86 kg

DRUGS (3)
  1. SKELAXIN [Suspect]
     Indication: BACK INJURY
     Dosage: 800 MG, TID
     Route: 048
     Dates: start: 20060217, end: 20060226
  2. CELEBREX [Concomitant]
     Indication: BACK INJURY
     Dosage: UNK, QD
     Route: 048
     Dates: start: 20060217
  3. ETHANOL [Concomitant]
     Dates: start: 20060225, end: 20060225

REACTIONS (13)
  - ABNORMAL BEHAVIOUR [None]
  - COLD SWEAT [None]
  - CONFUSIONAL STATE [None]
  - DISORIENTATION [None]
  - HYPERTENSION [None]
  - LEUKOPENIA [None]
  - PALLOR [None]
  - PARANOIA [None]
  - PSYCHOTIC DISORDER [None]
  - RESTLESSNESS [None]
  - SPEECH DISORDER [None]
  - STARING [None]
  - TACHYCARDIA [None]
